FAERS Safety Report 9788363 (Version 1)
Quarter: 2013Q4

REPORT INFORMATION
  Report Type: Spontaneous
  Country: FR (occurrence: FR)
  Receive Date: 20131230
  Receipt Date: 20131230
  Transmission Date: 20140711
  Serious: Yes (Other)
  Sender: FDA-Public Use
  Company Number: FR-SA-2013SA134081

PATIENT
  Sex: 0

DRUGS (1)
  1. STILNOX [Suspect]
     Indication: BRAIN INJURY
     Route: 065

REACTIONS (3)
  - Neurological examination normal [Unknown]
  - Therapeutic response unexpected [Unknown]
  - Off label use [Unknown]
